FAERS Safety Report 7888253-9 (Version None)
Quarter: 2011Q4

REPORT INFORMATION
  Report Type: 
  Country: None (occurrence: None)
  Receive Date: 20111103
  Receipt Date: 20111025
  Transmission Date: 20120403
  Serious: Yes (Hospitalization)
  Sender: FDA-Public Use
  Company Number: GB-SANOFI-AVENTIS-2011SA051085

PATIENT
  Age: 67 Year
  Sex: Male
  Weight: 82.6 kg

DRUGS (7)
  1. ELOXATIN [Suspect]
     Route: 042
     Dates: start: 20100913
  2. IRINOTECAN HCL [Concomitant]
     Route: 042
     Dates: start: 20110718, end: 20110718
  3. ELOXATIN [Suspect]
     Route: 042
     Dates: start: 20110801, end: 20110801
  4. TEGAFUR/URACIL [Concomitant]
     Route: 042
     Dates: start: 20110718, end: 20110718
  5. TEGAFUR/URACIL [Concomitant]
     Route: 042
     Dates: start: 20110801, end: 20110801
  6. TEGAFUR/URACIL [Concomitant]
     Route: 042
     Dates: start: 20100913
  7. IRINOTECAN HCL [Concomitant]
     Route: 042
     Dates: start: 20100913

REACTIONS (6)
  - PERIPHERAL SENSORIMOTOR NEUROPATHY [None]
  - PAIN [None]
  - INJECTION SITE EXTRAVASATION [None]
  - MUSCLE TWITCHING [None]
  - OEDEMA PERIPHERAL [None]
  - SENSORY LOSS [None]
